FAERS Safety Report 7383090-6 (Version None)
Quarter: 2011Q1

REPORT INFORMATION
  Report Type: 
  Country: None (occurrence: None)
  Receive Date: 20110330
  Receipt Date: 20110325
  Transmission Date: 20110831
  Serious: No
  Sender: FDA-Public Use
  Company Number: US-PFIZER INC-2011067416

PATIENT
  Age: 9 Month
  Sex: Male

DRUGS (2)
  1. PEDIATRIC ADVIL [Suspect]
     Indication: PYREXIA
     Dosage: 1.25 ML, UNK
     Route: 048
     Dates: start: 20110325
  2. PEDIATRIC ADVIL [Suspect]
     Indication: NASOPHARYNGITIS

REACTIONS (1)
  - DYSPHONIA [None]
